FAERS Safety Report 24305686 (Version 1)
Quarter: 2024Q3

REPORT INFORMATION
  Report Type: Spontaneous
  Country: FR (occurrence: FR)
  Receive Date: 20240911
  Receipt Date: 20240911
  Transmission Date: 20241016
  Serious: Yes (Hospitalization)
  Sender: SANDOZ
  Company Number: None

PATIENT
  Age: 64 Year
  Sex: Male
  Weight: 86.85 kg

DRUGS (11)
  1. AMOXICILLIN [Suspect]
     Active Substance: AMOXICILLIN
     Indication: Lung disorder
     Dosage: 1G 3 TIMES A DAY
     Route: 048
     Dates: start: 20240601, end: 20240609
  2. AMOXICILLIN [Suspect]
     Active Substance: AMOXICILLIN
     Indication: Product used for unknown indication
     Dosage: 1G 3 TIMES A DAY
     Route: 048
     Dates: start: 20240618, end: 20240628
  3. ACETAMINOPHEN [Suspect]
     Active Substance: ACETAMINOPHEN
     Indication: Pain
     Dosage: MISUSE AT } 4 GRAMS/DAY
     Route: 048
     Dates: start: 20240601, end: 20240609
  4. ACETAMINOPHEN [Suspect]
     Active Substance: ACETAMINOPHEN
     Dosage: MISUSE AT } 4 GRAMS/DAY
     Route: 048
     Dates: start: 20240618, end: 20240628
  5. CROMOLYN SODIUM [Concomitant]
     Active Substance: CROMOLYN SODIUM
     Indication: Conjunctivitis allergic
     Dosage: 1 DROP 4 TO 6 TIMES A DAY
     Route: 031
     Dates: start: 2024
  6. DYMISTA [Concomitant]
     Active Substance: AZELASTINE HYDROCHLORIDE\FLUTICASONE PROPIONATE
     Indication: Rhinitis allergic
     Dosage: 2/J SI BESOIN, STRENGTH-137 MICROGRAMMES/50 MICROGRAMMES
     Route: 055
     Dates: start: 2024
  7. PANTOPRAZOLE [Concomitant]
     Active Substance: PANTOPRAZOLE
     Indication: Gastrooesophageal reflux disease
     Dosage: 0-0-1
     Route: 048
     Dates: start: 2024
  8. RAMIPRIL [Concomitant]
     Active Substance: RAMIPRIL
     Indication: Hypertension
     Dosage: 1-0-0
     Route: 048
     Dates: start: 2024
  9. RAMIPRIL [Concomitant]
     Active Substance: RAMIPRIL
     Indication: Hypertension
  10. ALBUTEROL [Concomitant]
     Active Substance: ALBUTEROL
     Indication: Asthma
     Dosage: 2 PUFFS WHEN NEEDED
     Route: 055
     Dates: start: 2024
  11. BECLOMETHASONE DIPROPIONATE\FORMOTEROL FUMARATE\GLYCOPYRROLATE [Concomitant]
     Active Substance: BECLOMETHASONE DIPROPIONATE\FORMOTEROL FUMARATE\GLYCOPYRROLATE
     Indication: Asthma
     Dosage: 2-0-2, 172 MICROGRAMMES/ 5 MICROGRAMMES/ 9 MICROGRAMMES
     Route: 055
     Dates: start: 2024

REACTIONS (2)
  - Hepatitis cholestatic [Recovering/Resolving]
  - Liver injury [Recovering/Resolving]

NARRATIVE: CASE EVENT DATE: 20240722
